FAERS Safety Report 20353678 (Version 1)
Quarter: 2022Q1

REPORT INFORMATION
  Report Type: Spontaneous
  Country: PK (occurrence: PK)
  Receive Date: 20220120
  Receipt Date: 20220120
  Transmission Date: 20220423
  Serious: Yes (Other)
  Sender: FDA-Public Use
  Company Number: PK-PFIZER INC-2020462878

PATIENT
  Sex: Female
  Weight: 52 kg

DRUGS (14)
  1. ENBREL [Suspect]
     Active Substance: ETANERCEPT
     Indication: Rheumatoid arthritis
     Dosage: 50 MG, MONTHLY
     Route: 065
     Dates: start: 201805
  2. ENBREL [Suspect]
     Active Substance: ETANERCEPT
     Dosage: 50 MG, MONTHLY
     Route: 058
     Dates: start: 20201123, end: 202109
  3. ENBREL [Suspect]
     Active Substance: ETANERCEPT
     Dosage: 50 MG, MONTHLY
     Route: 058
     Dates: start: 20220106
  4. FOLIC ACID [Concomitant]
     Active Substance: FOLIC ACID
     Dosage: 5 MILLIGRAM, QD (1 TABLET IN MORNING)
  5. LEFORA [Concomitant]
     Dosage: 10 MG, DAILY
  6. CAC [Concomitant]
     Dosage: 1 DF, 1X/DAY
  7. SYSTANE (HYPROMELLOSE 2910 (4000 MPA.S)) [Concomitant]
     Active Substance: HYPROMELLOSE 2910 (4000 MPA.S)
     Dosage: 50 MG 1XS/C, ONCE A MONTH 2 DROPS IN MORNING, 2 IN AFTERNOON, 2 IN EVENING
     Route: 058
  8. H2F [Concomitant]
     Dosage: 20 MG, AS NEEDED, (1 TABLET BEFORE BREAKFAST)
  9. ESCITALOPRAM OXALATE [Concomitant]
     Active Substance: ESCITALOPRAM OXALATE
     Dosage: 5 MG, 1X/DAY AFTER MEAL (TAKE HALF TABLET AFTER BREAKFAST)
  10. EZIDAY [Concomitant]
     Dosage: UNK
  11. ASPIRIN [Concomitant]
     Active Substance: ASPIRIN
     Dosage: 75 MG, 1X/DAY (AFTER MEAL)
  12. BISOPROLOL [Concomitant]
     Active Substance: BISOPROLOL
     Dosage: UNK
  13. DEXAMETHASONE [Concomitant]
     Active Substance: DEXAMETHASONE
     Dosage: UNK
  14. FAMOTID [Concomitant]
     Dosage: 20 MG, 1X/DAY (BEFORE MEAL)

REACTIONS (14)
  - Condition aggravated [Unknown]
  - Off label use [Unknown]
  - Haemoglobin decreased [Unknown]
  - Urine ketone body present [Unknown]
  - Blood urine present [Unknown]
  - Urine leukocyte esterase positive [Unknown]
  - Osteoporosis [Unknown]
  - Pain in extremity [Unknown]
  - Synovitis [Unknown]
  - Osteoarthritis [Unknown]
  - Pain in extremity [Unknown]
  - Arthralgia [Unknown]
  - Infection [Unknown]
  - Furuncle [Unknown]
